FAERS Safety Report 20432301 (Version 8)
Quarter: 2022Q2

REPORT INFORMATION
  Report Type: Report from Study
  Country: ES (occurrence: ES)
  Receive Date: 20220204
  Receipt Date: 20220404
  Transmission Date: 20220721
  Serious: Yes (Other)
  Sender: FDA-Public Use
  Company Number: ES-PFIZER INC-202200186967

PATIENT
  Age: 52 Year
  Sex: Female
  Weight: 41 kg

DRUGS (24)
  1. PALBOCICLIB [Suspect]
     Active Substance: PALBOCICLIB
     Indication: HER2 positive breast cancer
     Dosage: 125 MILLIGRAM, QD
     Route: 048
     Dates: start: 20211130, end: 20220111
  2. PALBOCICLIB [Suspect]
     Active Substance: PALBOCICLIB
     Dosage: 100 MILLIGRAM, QD
     Route: 048
     Dates: start: 20220208, end: 20220222
  3. ZANIDATAMAB [Suspect]
     Active Substance: ZANIDATAMAB
     Indication: HER2 positive breast cancer
     Dosage: 20 MILLIGRAM/KILOGRAM, Q2W
     Route: 042
     Dates: start: 20211130
  4. ZANIDATAMAB [Suspect]
     Active Substance: ZANIDATAMAB
     Dosage: 20 MILLIGRAM/KILOGRAM, Q2W
     Route: 042
  5. ZANIDATAMAB [Suspect]
     Active Substance: ZANIDATAMAB
     Dosage: 20 MILLIGRAM/KILOGRAM, Q2W
     Route: 042
  6. ZANIDATAMAB [Suspect]
     Active Substance: ZANIDATAMAB
     Dosage: 20 MILLIGRAM/KILOGRAM, Q2W
     Route: 042
  7. ZANIDATAMAB [Suspect]
     Active Substance: ZANIDATAMAB
     Dosage: 20 MILLIGRAM/KILOGRAM, Q2W
     Route: 042
  8. ZANIDATAMAB [Suspect]
     Active Substance: ZANIDATAMAB
     Dosage: 20 MILLIGRAM/KILOGRAM, Q2W
     Route: 042
     Dates: end: 20220111
  9. ZANIDATAMAB [Suspect]
     Active Substance: ZANIDATAMAB
     Dosage: 15 MILLIGRAM/KILOGRAM,Q2W
     Route: 042
     Dates: start: 20220208
  10. ZANIDATAMAB [Suspect]
     Active Substance: ZANIDATAMAB
     Dosage: 15 MILLIGRAM/KILOGRAM,Q2W
     Route: 042
  11. ZANIDATAMAB [Suspect]
     Active Substance: ZANIDATAMAB
     Dosage: 15 MILLIGRAM/KILOGRAM,Q2W
     Route: 042
  12. ZANIDATAMAB [Suspect]
     Active Substance: ZANIDATAMAB
     Dosage: 15 MILLIGRAM/KILOGRAM,Q2W
     Route: 042
  13. ZANIDATAMAB [Suspect]
     Active Substance: ZANIDATAMAB
     Dosage: 15 MILLIGRAM/KILOGRAM,Q2W
     Route: 042
  14. ZANIDATAMAB [Suspect]
     Active Substance: ZANIDATAMAB
     Dosage: 15 MILLIGRAM/KILOGRAM,Q2W
     Route: 042
     Dates: end: 20220222
  15. ZANIDATAMAB [Suspect]
     Active Substance: ZANIDATAMAB
     Dosage: 10 MILLIGRAM/KILOGRAM,Q2W
     Route: 042
     Dates: start: 20220322
  16. ZANIDATAMAB [Suspect]
     Active Substance: ZANIDATAMAB
     Dosage: 10 MILLIGRAM/KILOGRAM,Q2W
     Route: 042
  17. ZANIDATAMAB [Suspect]
     Active Substance: ZANIDATAMAB
     Dosage: 10 MILLIGRAM/KILOGRAM,Q2W
     Route: 042
  18. ZANIDATAMAB [Suspect]
     Active Substance: ZANIDATAMAB
     Dosage: 10 MILLIGRAM/KILOGRAM,Q2W
     Route: 042
  19. ZANIDATAMAB [Suspect]
     Active Substance: ZANIDATAMAB
     Dosage: 10 MILLIGRAM/KILOGRAM,Q2W
     Route: 042
  20. ZANIDATAMAB [Suspect]
     Active Substance: ZANIDATAMAB
     Dosage: 10 MILLIGRAM/KILOGRAM,Q2W
     Route: 042
  21. FULVESTRANT [Suspect]
     Active Substance: FULVESTRANT
     Indication: HER2 positive breast cancer
     Dosage: 500 MILLIGRAM, Q4W
     Route: 030
     Dates: start: 20211130, end: 20220125
  22. FULVESTRANT [Suspect]
     Active Substance: FULVESTRANT
     Dosage: 500 MILLIGRAM, Q4W
     Route: 030
     Dates: start: 20220208, end: 20220222
  23. FULVESTRANT [Suspect]
     Active Substance: FULVESTRANT
     Dosage: 500 MILLIGRAM, Q4W
     Route: 030
     Dates: start: 20220322
  24. AMOXICILLIN\CLAVULANIC ACID [Concomitant]
     Active Substance: AMOXICILLIN\CLAVULANIC ACID
     Dosage: UNK
     Dates: start: 20220122

REACTIONS (1)
  - Transaminases increased [Recovered/Resolved]

NARRATIVE: CASE EVENT DATE: 20220125
